FAERS Safety Report 7958146-7 (Version None)
Quarter: 2011Q4

REPORT INFORMATION
  Report Type: 
  Country: None (occurrence: None)
  Receive Date: 20111201
  Receipt Date: 20111116
  Transmission Date: 20120403
  Serious: Yes (Death)
  Sender: FDA-Public Use
  Company Number: 2011S1000371

PATIENT

DRUGS (1)
  1. INOMAX [Suspect]
     Indication: PRODUCT USED FOR UNKNOWN INDICATION
     Dosage: 21 PPM; CONT; INH
     Route: 055
     Dates: start: 20111115, end: 20111116

REACTIONS (1)
  - DEVICE FAILURE [None]
